FAERS Safety Report 17434852 (Version 2)
Quarter: 2020Q1

REPORT INFORMATION
  Report Type: Spontaneous
  Country: JP (occurrence: JP)
  Receive Date: 20200219
  Receipt Date: 20200226
  Transmission Date: 20200409
  Serious: Yes (Hospitalization)
  Sender: FDA-Public Use
  Company Number: JP-JNJFOC-20200221627

PATIENT
  Age: 47 Year
  Sex: Male

DRUGS (1)
  1. RIVAROXABAN [Suspect]
     Active Substance: RIVAROXABAN
     Indication: EMBOLISM VENOUS
     Dosage: 15 MG, QD
     Route: 048
     Dates: start: 2018, end: 20200209

REACTIONS (3)
  - Cerebral infarction [Recovering/Resolving]
  - Deep vein thrombosis [Unknown]
  - Acute myocardial infarction [Recovering/Resolving]

NARRATIVE: CASE EVENT DATE: 20200205
